FAERS Safety Report 7348976-7 (Version None)
Quarter: 2011Q1

REPORT INFORMATION
  Report Type: 
  Country: None (occurrence: None)
  Receive Date: 20110303
  Receipt Date: 20110222
  Transmission Date: 20110831
  Serious: Yes (Life-Threatening, Hospitalization, Other)
  Sender: FDA-Public Use
  Company Number: 028022

PATIENT
  Age: 56 Year
  Sex: Male
  Weight: 70 kg

DRUGS (2)
  1. KEPPRA [Suspect]
     Indication: EPILEPSY
     Dosage: 250 MG BID ORAL, 500 MG BID ORAL
     Route: 048
     Dates: start: 20000819, end: 20100112
  2. KEPPRA [Suspect]
     Indication: EPILEPSY
     Dosage: 250 MG BID ORAL, 500 MG BID ORAL
     Route: 048
     Dates: start: 20100113, end: 20101119

REACTIONS (2)
  - LONG QT SYNDROME [None]
  - BLOOD POTASSIUM INCREASED [None]
